FAERS Safety Report 5730201-1 (Version None)
Quarter: 2008Q2

REPORT INFORMATION
  Report Type: 
  Country: None (occurrence: None)
  Receive Date: 20080505
  Receipt Date: 20080505
  Transmission Date: 20081010
  Serious: Yes (Hospitalization)
  Sender: FDA-Public Use
  Company Number: None

PATIENT
  Sex: Male
  Weight: 85.3 kg

DRUGS (4)
  1. CARMUSTINE [Suspect]
     Dosage: 990 MG
     Dates: end: 20080115
  2. CYCLOPHOSPHAMIDE [Suspect]
     Dosage: 6920 MG
     Dates: end: 20080119
  3. ETOPOSIDE [Suspect]
     Dosage: 4152 MG
     Dates: end: 20080117
  4. RITUXIMAB (MOAB C2B8 ANTI CD20, CHIMERIC) [Suspect]
     Dosage: 730 MG
     Dates: end: 20080305

REACTIONS (4)
  - ATELECTASIS [None]
  - INTERSTITIAL LUNG DISEASE [None]
  - PNEUMONIA [None]
  - PNEUMONITIS [None]
